FAERS Safety Report 14444654 (Version 1)
Quarter: 2018Q1

REPORT INFORMATION
  Report Type: Report from Study
  Country: None (occurrence: FR)
  Receive Date: 20180126
  Receipt Date: 20180126
  Transmission Date: 20180509
  Serious: Yes (Other)
  Sender: FDA-Public Use
  Company Number: FR-ABBVIE-18K-056-2218548-00

PATIENT
  Age: 68 Year
  Sex: Female
  Weight: 64.3 kg

DRUGS (1)
  1. DUODOPA [Suspect]
     Active Substance: CARBIDOPA\LEVODOPA
     Indication: PARKINSON^S DISEASE
     Route: 050
     Dates: start: 2014

REACTIONS (8)
  - Mobility decreased [Recovering/Resolving]
  - Large intestinal obstruction [Recovering/Resolving]
  - Constipation [Recovering/Resolving]
  - Stoma site erythema [Recovering/Resolving]
  - Fungal infection [Recovering/Resolving]
  - Hypophagia [Recovering/Resolving]
  - Weight decreased [Recovering/Resolving]
  - Pneumonia [Recovering/Resolving]

NARRATIVE: CASE EVENT DATE: 201702
